FAERS Safety Report 8552562-0 (Version None)
Quarter: 2012Q3

REPORT INFORMATION
  Report Type: 
  Country: None (occurrence: None)
  Receive Date: 20120731
  Receipt Date: 20120720
  Transmission Date: 20120928
  Serious: Yes (Hospitalization, Other)
  Sender: FDA-Public Use
  Company Number: HR-MILLENNIUM PHARMACEUTICALS, INC.-2012-05081

PATIENT

DRUGS (1)
  1. VELCADE [Suspect]
     Indication: MULTIPLE MYELOMA
     Dosage: 1.3 MG/M2, UNK
     Route: 042
     Dates: start: 20120702, end: 20120712

REACTIONS (7)
  - PROTHROMBIN TIME SHORTENED [None]
  - ASTHENIA [None]
  - BLOOD LACTATE DEHYDROGENASE [None]
  - BLOOD BILIRUBIN INCREASED [None]
  - BLOOD FIBRINOGEN DECREASED [None]
  - BLOOD CREATINE PHOSPHOKINASE INCREASED [None]
  - TRANSAMINASES INCREASED [None]
